FAERS Safety Report 9245860 (Version 5)
Quarter: 2014Q1

REPORT INFORMATION
  Report Type: Spontaneous
  Country: US (occurrence: US)
  Receive Date: 20130422
  Receipt Date: 20140320
  Transmission Date: 20141002
  Serious: Yes (Life-Threatening, Other)
  Sender: FDA-Public Use
  Company Number: US-JNJFOC-20130411603

PATIENT
  Age: 64 Year
  Sex: Male
  Weight: 66.3 kg

DRUGS (11)
  1. REMICADE [Suspect]
     Indication: CROHN^S DISEASE
     Dosage: EVERY 8-12 WEEKS??EVERY 8-10 WEEKS
     Route: 042
     Dates: start: 19981013, end: 20000726
  2. REMICADE [Suspect]
     Indication: CROHN^S DISEASE
     Route: 042
  3. AZATHIOPRINE [Suspect]
     Indication: CROHN^S DISEASE
     Route: 048
     Dates: start: 19981222, end: 19990316
  4. AZATHIOPRINE [Suspect]
     Indication: CROHN^S DISEASE
     Route: 048
     Dates: start: 19990317, end: 19990714
  5. AZATHIOPRINE [Suspect]
     Indication: CROHN^S DISEASE
     Route: 048
     Dates: start: 19990715
  6. AZATHIOPRINE [Suspect]
     Indication: CROHN^S DISEASE
     Route: 048
     Dates: start: 19960831, end: 19981221
  7. LOMOTIL [Concomitant]
     Indication: DIARRHOEA
     Dosage: STOPPED IN FALL 1998
     Route: 048
     Dates: start: 19960831, end: 1998
  8. IRON [Concomitant]
     Route: 065
  9. PREDNISONE [Concomitant]
     Dosage: TAPER DOSE
     Route: 065
     Dates: start: 19971212, end: 199803
  10. PREDNISONE [Concomitant]
     Dosage: TAPER DOSE
     Route: 065
     Dates: start: 19961110, end: 199703
  11. PREDNISONE [Concomitant]
     Dosage: TAPER DOSE
     Route: 065
     Dates: start: 19960831, end: 19961102

REACTIONS (1)
  - Lung adenocarcinoma [Unknown]
